FAERS Safety Report 9258700 (Version 1)
Quarter: 2013Q2

REPORT INFORMATION
  Report Type: Report from Study
  Country: US (occurrence: US)
  Receive Date: 20130426
  Receipt Date: 20130426
  Transmission Date: 20140414
  Serious: Yes (Life-Threatening)
  Sender: FDA-Public Use
  Company Number: US-PFIZER INC-2013129903

PATIENT
  Age: 17 Year
  Sex: Female
  Weight: 59 kg

DRUGS (11)
  1. CYTARABINE [Suspect]
     Dosage: UNK
     Dates: start: 20130117
  2. CYTARABINE [Suspect]
     Dosage: 70 MG, SINGLE
     Route: 037
     Dates: start: 20130221, end: 20130221
  3. CYTARABINE [Suspect]
     Dosage: 165 (UNKNOWN UNITS) TWICE A DAY
     Route: 042
     Dates: start: 20130222, end: 20130302
  4. FLUCONAZOLE [Suspect]
     Dosage: UNK
  5. ETHINYL ESTRADIOL/NORGESTREL [Suspect]
  6. DAUNORUBICIN [Suspect]
     Dosage: UNK
     Dates: start: 20130117
  7. DAUNORUBICIN [Suspect]
     Dosage: UNK
     Dates: start: 20130222
  8. ETOPOSIDE [Suspect]
     Dosage: UNK
     Dates: start: 20130117
  9. ETOPOSIDE [Suspect]
     Dosage: UNK
     Dates: start: 20130222
  10. VELCADE [Suspect]
     Dosage: UNK
     Route: 042
     Dates: start: 20130117
  11. VELCADE [Suspect]
     Dosage: UNK
     Dates: start: 20130222

REACTIONS (1)
  - Alanine aminotransferase increased [Not Recovered/Not Resolved]
